FAERS Safety Report 18793406 (Version 1)
Quarter: 2021Q1

REPORT INFORMATION
  Report Type: Spontaneous
  Country: US (occurrence: US)
  Receive Date: 20210127
  Receipt Date: 20210127
  Transmission Date: 20210419
  Serious: Yes (Other)
  Sender: FDA-Public Use
  Company Number: US-ROCHE-2755109

PATIENT
  Sex: Male

DRUGS (13)
  1. METFORMIN HYDROCHLORIDE. [Concomitant]
     Active Substance: METFORMIN HYDROCHLORIDE
  2. MAGNESIUM [Concomitant]
     Active Substance: MAGNESIUM
  3. ESBRIET [Suspect]
     Active Substance: PIRFENIDONE
     Indication: IDIOPATHIC PULMONARY FIBROSIS
     Dosage: 2 TAKE 3 CAPSULES BY MOUTH THREE TIMES A DAY WITH MEAL
     Route: 048
  4. NEXIUM [Concomitant]
     Active Substance: ESOMEPRAZOLE MAGNESIUM
  5. VITAMIN C [Concomitant]
     Active Substance: ASCORBIC ACID
  6. METHOCARBAMOL. [Concomitant]
     Active Substance: METHOCARBAMOL
  7. COLCRYS [Concomitant]
     Active Substance: COLCHICINE
  8. PLAVIX [Concomitant]
     Active Substance: CLOPIDOGREL BISULFATE
  9. SIMVASTATIN. [Concomitant]
     Active Substance: SIMVASTATIN
  10. TIKOSYN [Concomitant]
     Active Substance: DOFETILIDE
  11. ZYRTEC [Concomitant]
     Active Substance: CETIRIZINE HYDROCHLORIDE
  12. PANTOPRAZOLE [Concomitant]
     Active Substance: PANTOPRAZOLE
  13. GABAPENTIN. [Concomitant]
     Active Substance: GABAPENTIN

REACTIONS (3)
  - Arrhythmia [Not Recovered/Not Resolved]
  - Cough [Not Recovered/Not Resolved]
  - Arthritis [Not Recovered/Not Resolved]
